FAERS Safety Report 7340668-3 (Version None)
Quarter: 2011Q1

REPORT INFORMATION
  Report Type: 
  Country: None (occurrence: None)
  Receive Date: 20110309
  Receipt Date: 20110302
  Transmission Date: 20110831
  Serious: Yes (Life-Threatening, Hospitalization)
  Sender: FDA-Public Use
  Company Number: US-ROCHE-760395

PATIENT
  Sex: Female
  Weight: 75.4 kg

DRUGS (9)
  1. HYDROCODONE BITARTRATE [Concomitant]
     Dates: start: 20110210
  2. ACETAMINOPHEN [Concomitant]
     Dates: start: 20110211, end: 20110213
  3. OSELTAMIVIR [Suspect]
     Indication: INFLUENZA
     Dosage: PERMANENTLY DISCONTINUED. DOSE BLINDED.
     Route: 042
     Dates: start: 20110211, end: 20110213
  4. CEFTRIAXONE [Suspect]
     Route: 042
     Dates: start: 20110209, end: 20110211
  5. AZITHROMYCIN [Concomitant]
     Route: 048
     Dates: start: 20110209, end: 20110213
  6. DIPHENHYDRAMINE [Concomitant]
     Dates: start: 20110211, end: 20110212
  7. VANCOMYCIN [Concomitant]
     Dates: start: 20110211, end: 20110213
  8. CEFEPIME [Suspect]
     Route: 065
     Dates: start: 20110211, end: 20110213
  9. MAGNESIUM SULFATE [Concomitant]
     Dates: start: 20110210, end: 20110213

REACTIONS (2)
  - PYREXIA [None]
  - NEUTROPENIA [None]
